FAERS Safety Report 7648919-2 (Version None)
Quarter: 2011Q3

REPORT INFORMATION
  Report Type: 
  Country: None (occurrence: None)
  Receive Date: 20110801
  Receipt Date: 20110718
  Transmission Date: 20111222
  Serious: Yes (Other)
  Sender: FDA-Public Use
  Company Number: US-AMGEN-USASP2010011899

PATIENT
  Age: 47 Year
  Sex: Female

DRUGS (3)
  1. ARANESP [Suspect]
     Indication: PRODUCT USED FOR UNKNOWN INDICATION
     Dosage: UNK UNK, QWK
     Route: 058
  2. PROCRIT [Suspect]
     Indication: PRODUCT USED FOR UNKNOWN INDICATION
     Dosage: UNK UNK, QWK
     Route: 058
  3. EPOGEN [Suspect]
     Indication: PRODUCT USED FOR UNKNOWN INDICATION
     Dosage: UNK UNK, QWK
     Route: 058

REACTIONS (5)
  - HAEMOGLOBIN DECREASED [None]
  - DRUG HYPERSENSITIVITY [None]
  - TRANSFUSION [None]
  - EYE SWELLING [None]
  - SWELLING FACE [None]
